FAERS Safety Report 4409588-8 (Version None)
Quarter: 2004Q3

REPORT INFORMATION
  Report Type: 
  Country: None (occurrence: None)
  Receive Date: 20040723
  Receipt Date: 20040709
  Transmission Date: 20050211
  Serious: Yes (Hospitalization)
  Sender: FDA-Public Use
  Company Number: 2004222914US

PATIENT
  Age: 61 Year
  Sex: Female
  Weight: 86.2 kg

DRUGS (4)
  1. CELEBREX [Suspect]
     Indication: ARTHRITIS
     Dosage: SEE IMAGE
     Route: 048
     Dates: start: 20040429, end: 20040429
  2. CELEBREX [Suspect]
     Indication: ARTHRITIS
     Dosage: SEE IMAGE
     Route: 048
     Dates: start: 20021001
  3. ALCOHOL (ETHANOL) [Suspect]
  4. SYNTHROID [Concomitant]

REACTIONS (6)
  - GENERALISED ERYTHEMA [None]
  - HYPERHIDROSIS [None]
  - HYPERSENSITIVITY [None]
  - PRURITUS [None]
  - PULSE ABSENT [None]
  - SWOLLEN TONGUE [None]
